FAERS Safety Report 12275465 (Version 1)
Quarter: 2016Q2

REPORT INFORMATION
  Report Type: Report from Study
  Country: FR (occurrence: FR)
  Receive Date: 20160415
  Receipt Date: 20160415
  Transmission Date: 20160815
  Serious: Yes (Hospitalization)
  Sender: FDA-Public Use
  Company Number: FR-JAZZ-JPI-P-004282

PATIENT
  Age: 64 Year
  Sex: Male
  Weight: 120 kg

DRUGS (5)
  1. XYREM [Suspect]
     Active Substance: SODIUM OXYBATE
     Dosage: 4.5 G, BID
     Route: 065
     Dates: start: 20160228, end: 20160329
  2. TERONAC [Concomitant]
     Indication: NARCOLEPSY
  3. TERONAC [Concomitant]
     Indication: CATAPLEXY
  4. XYREM [Suspect]
     Active Substance: SODIUM OXYBATE
     Indication: NARCOLEPSY
     Dosage: 2.25 G, BID
     Route: 048
     Dates: start: 20080404
  5. XYREM [Suspect]
     Active Substance: SODIUM OXYBATE
     Indication: CATAPLEXY
     Dosage: 4.5 G, BID
     Route: 048
     Dates: start: 20091022, end: 20091121

REACTIONS (6)
  - Erythema [Unknown]
  - Nervousness [Unknown]
  - Fall [Unknown]
  - Hospitalisation [Unknown]
  - Dyspnoea [Unknown]
  - Headache [Unknown]

NARRATIVE: CASE EVENT DATE: 2008
